FAERS Safety Report 18797017 (Version 1)
Quarter: 2021Q1

REPORT INFORMATION
  Report Type: Spontaneous
  Country: CA (occurrence: CA)
  Receive Date: 20210127
  Receipt Date: 20210127
  Transmission Date: 20210419
  Serious: Yes (Other)
  Sender: FDA-Public Use
  Company Number: NVSC2021CA011790

PATIENT
  Age: 52 Year
  Sex: Female
  Weight: 98 kg

DRUGS (29)
  1. PACLITAXEL. [Suspect]
     Active Substance: PACLITAXEL
     Indication: METASTASES TO LIVER
     Dosage: UNK (LIQUID INTRAVENOUS)
     Route: 065
  2. FLUOROURACIL. [Suspect]
     Active Substance: FLUOROURACIL
     Indication: BREAST CANCER METASTATIC
  3. TAXOTERE [Suspect]
     Active Substance: DOCETAXEL
     Indication: BREAST CANCER METASTATIC
  4. EPIRUBICIN [Suspect]
     Active Substance: EPIRUBICIN
     Indication: BREAST CANCER STAGE II
     Dosage: UNK
     Route: 065
  5. OLMESARTAN MEDOXOMIL. [Concomitant]
     Active Substance: OLMESARTAN MEDOXOMIL
     Indication: PRODUCT USED FOR UNKNOWN INDICATION
     Dosage: UNK
     Route: 048
  6. RIVAROXABAN [Concomitant]
     Active Substance: RIVAROXABAN
     Indication: PRODUCT USED FOR UNKNOWN INDICATION
     Dosage: 15.0 MG, QD
     Route: 048
  7. LETROZOLE. [Suspect]
     Active Substance: LETROZOLE
     Indication: METASTASES TO LIVER
     Dosage: UNK
     Route: 065
  8. EXEMESTANE. [Suspect]
     Active Substance: EXEMESTANE
     Indication: BREAST CANCER METASTATIC
  9. XELODA [Suspect]
     Active Substance: CAPECITABINE
     Indication: BREAST CANCER METASTATIC
  10. ACETAMINOPHEN. [Concomitant]
     Active Substance: ACETAMINOPHEN
     Indication: PRODUCT USED FOR UNKNOWN INDICATION
     Dosage: 1000.0 MG, QD
     Route: 048
  11. FLUOROURACIL. [Suspect]
     Active Substance: FLUOROURACIL
     Indication: METASTASES TO LIVER
     Dosage: UNK
     Route: 065
  12. CARBOPLATIN. [Suspect]
     Active Substance: CARBOPLATIN
     Indication: METASTASES TO LIVER
     Dosage: UNK
     Route: 065
  13. HYDROMORPHONE [Concomitant]
     Active Substance: HYDROMORPHONE
     Indication: PRODUCT USED FOR UNKNOWN INDICATION
     Route: 048
  14. TAXOL [Suspect]
     Active Substance: PACLITAXEL
     Indication: BREAST CANCER METASTATIC
  15. TAXOTERE [Suspect]
     Active Substance: DOCETAXEL
     Indication: METASTASES TO LIVER
     Dosage: UNK
     Route: 065
  16. EXEMESTANE. [Suspect]
     Active Substance: EXEMESTANE
     Indication: METASTASES TO LIVER
     Dosage: UNK
     Route: 065
  17. CARBOPLATIN. [Suspect]
     Active Substance: CARBOPLATIN
     Indication: BREAST CANCER METASTATIC
  18. MAGNESIUM [Concomitant]
     Active Substance: MAGNESIUM
     Indication: PRODUCT USED FOR UNKNOWN INDICATION
     Dosage: 750.0 MG, QD
     Route: 048
  19. AFINITOR [Suspect]
     Active Substance: EVEROLIMUS
     Indication: METASTASES TO LIVER
     Route: 065
  20. TAMOXIFEN [Suspect]
     Active Substance: TAMOXIFEN
     Indication: METASTASES TO LIVER
     Dosage: UNK
     Route: 048
  21. TAXOL [Suspect]
     Active Substance: PACLITAXEL
     Indication: METASTASES TO LIVER
     Route: 065
  22. XELODA [Suspect]
     Active Substance: CAPECITABINE
     Indication: METASTASES TO LIVER
     Dosage: UNK
     Route: 065
  23. ACETAMINOPHEN AND CODEINE [Concomitant]
     Active Substance: ACETAMINOPHEN\CODEINE PHOSPHATE
     Indication: PRODUCT USED FOR UNKNOWN INDICATION
     Route: 048
  24. AFINITOR [Suspect]
     Active Substance: EVEROLIMUS
     Indication: BREAST CANCER METASTATIC
  25. PACLITAXEL. [Suspect]
     Active Substance: PACLITAXEL
     Indication: BREAST CANCER METASTATIC
  26. TAMOXIFEN [Suspect]
     Active Substance: TAMOXIFEN
     Indication: BREAST CANCER METASTATIC
  27. CANNABIDIOL [Concomitant]
     Active Substance: CANNABIDIOL
     Indication: PRODUCT USED FOR UNKNOWN INDICATION
     Dosage: UNK
     Route: 048
  28. HYDROCHLOORTHIAZIDE [Concomitant]
     Active Substance: HYDROCHLOROTHIAZIDE
     Indication: PRODUCT USED FOR UNKNOWN INDICATION
     Dosage: 25.0 MG, QD (1 EVERY 1 DAYS)
     Route: 048
  29. LETROZOLE. [Suspect]
     Active Substance: LETROZOLE
     Indication: BREAST CANCER METASTATIC

REACTIONS (17)
  - Metastases to bone [Unknown]
  - Heart rate irregular [Unknown]
  - Metastases to liver [Unknown]
  - Drug ineffective [Unknown]
  - Nausea [Unknown]
  - Asthma [Unknown]
  - Breast cancer metastatic [Unknown]
  - Skin exfoliation [Unknown]
  - Neuropathy peripheral [Unknown]
  - Rash [Unknown]
  - Nail disorder [Unknown]
  - Chest pain [Unknown]
  - Paraesthesia [Unknown]
  - Diarrhoea [Unknown]
  - Vomiting [Unknown]
  - Drug hypersensitivity [Unknown]
  - Device related thrombosis [Unknown]
